FAERS Safety Report 9043470 (Version 1)
Quarter: 2013Q1

REPORT INFORMATION
  Report Type: Spontaneous
  Country: US (occurrence: US)
  Receive Date: 20130129
  Receipt Date: 20130129
  Transmission Date: 20140127
  Serious: No
  Sender: FDA-Public Use
  Company Number: US-ABBOTT-12P-163-0912835-00

PATIENT
  Sex: Female
  Weight: 73.55 kg

DRUGS (6)
  1. HUMIRA 40 MG/ 0.8 ML PRE-FILLED SYRINGE [Suspect]
     Indication: RHEUMATOID ARTHRITIS
  2. METHOTREXATE [Concomitant]
     Indication: RHEUMATOID ARTHRITIS
  3. PREDNISONE [Concomitant]
     Indication: RHEUMATOID ARTHRITIS
  4. DICLOFENEC [Concomitant]
     Indication: RHEUMATOID ARTHRITIS
  5. UNNAMED MEDICATION [Concomitant]
     Indication: HYPERTENSION
  6. UNNAMED MEDICATION [Concomitant]
     Indication: HYPOTHYROIDISM

REACTIONS (1)
  - Arthritis [Not Recovered/Not Resolved]
